FAERS Safety Report 8030197-6 (Version None)
Quarter: 2012Q1

REPORT INFORMATION
  Report Type: 
  Country: None (occurrence: None)
  Receive Date: 20120109
  Receipt Date: 20120104
  Transmission Date: 20120608
  Serious: No
  Sender: FDA-Public Use
  Company Number: US-B.I. PHARMACEUTICALS,INC./RIDGEFIELD-2011-BP-25027BP

PATIENT
  Sex: Female

DRUGS (3)
  1. NPH INSULIN [Concomitant]
  2. METFORMIN HCL [Concomitant]
  3. TRADJENTA [Suspect]
     Indication: DIABETES MELLITUS
     Dosage: 5 MG
     Dates: start: 20111021, end: 20111022

REACTIONS (3)
  - NAUSEA [None]
  - DIZZINESS [None]
  - ASTHENIA [None]
